FAERS Safety Report 7769784-9 (Version None)
Quarter: 2011Q3

REPORT INFORMATION
  Report Type: 
  Country: None (occurrence: None)
  Receive Date: 20110922
  Receipt Date: 20100816
  Transmission Date: 20111222
  Serious: No
  Sender: FDA-Public Use
  Company Number: US-ASTRAZENECA-2009UW09911

PATIENT
  Age: 58 Year
  Sex: Male
  Weight: 104.3 kg

DRUGS (4)
  1. SEROQUEL [Suspect]
     Indication: ANXIETY
     Dosage: 325 MG TO 800 MG
     Route: 048
     Dates: start: 20050620
  2. LAMICTAL [Concomitant]
     Dates: start: 20050101
  3. SEROQUEL [Suspect]
     Indication: DEPRESSION
     Dosage: 325 MG TO 800 MG
     Route: 048
     Dates: start: 20050620
  4. EFFEXOR [Concomitant]
     Dates: start: 20080101

REACTIONS (2)
  - TYPE 2 DIABETES MELLITUS [None]
  - MENTAL DISORDER [None]
